FAERS Safety Report 25474526 (Version 4)
Quarter: 2025Q3

REPORT INFORMATION
  Report Type: Spontaneous
  Country: EU (occurrence: EU)
  Receive Date: 20250624
  Receipt Date: 20250729
  Transmission Date: 20251021
  Serious: Yes (Hospitalization, Other)
  Sender: MYLAN
  Company Number: None

PATIENT
  Age: 55 Year
  Sex: Male

DRUGS (8)
  1. METOPROLOL [Suspect]
     Active Substance: METOPROLOL
     Indication: Product used for unknown indication
  2. METOPROLOL [Suspect]
     Active Substance: METOPROLOL
     Route: 048
  3. METOPROLOL [Suspect]
     Active Substance: METOPROLOL
     Route: 048
  4. METOPROLOL [Suspect]
     Active Substance: METOPROLOL
  5. XARELTO [Suspect]
     Active Substance: RIVAROXABAN
     Indication: Product used for unknown indication
  6. XARELTO [Suspect]
     Active Substance: RIVAROXABAN
     Route: 065
  7. XARELTO [Suspect]
     Active Substance: RIVAROXABAN
     Route: 065
  8. XARELTO [Suspect]
     Active Substance: RIVAROXABAN

REACTIONS (4)
  - Atrial fibrillation [Unknown]
  - Suicide attempt [Unknown]
  - Poisoning [Unknown]
  - Intentional overdose [Unknown]

NARRATIVE: CASE EVENT DATE: 20240921
